FAERS Safety Report 8496323 (Version 2)
Quarter: 2013Q1

REPORT INFORMATION
  Report Type: Report from Study
  Country: JP (occurrence: JP)
  Receive Date: 20120405
  Receipt Date: 20130305
  Transmission Date: 20140127
  Serious: Yes (Hospitalization)
  Sender: FDA-Public Use
  Company Number: JP-PFIZER INC-2012080115

PATIENT
  Age: 10 Year
  Sex: Female
  Weight: 23.8 kg

DRUGS (8)
  1. TEMSIROLIMUS [Suspect]
     Indication: SYNOVIAL SARCOMA
     Dosage: 25 MG, UNK
     Route: 042
     Dates: start: 20111101, end: 20111101
  2. VINORELBINE [Suspect]
     Indication: SYNOVIAL SARCOMA
     Dosage: 23 MG, 1X/DAY
     Route: 042
  3. TEMOZOLOMIDE [Suspect]
     Indication: SYNOVIAL SARCOMA
     Dosage: 230 MG, 1X/DAY
     Route: 042
  4. ATARAX-P [Concomitant]
     Dosage: 20 MG, 1X/DAY
     Route: 042
  5. MEROPENEM [Concomitant]
     Indication: ADVERSE EVENT
     Dosage: 0.5 G, 3X/DAY
     Route: 042
     Dates: start: 20111105, end: 20111110
  6. NEUTROGIN [Concomitant]
     Indication: ADVERSE EVENT
     Dosage: 100 UG, 1X/DAY
     Dates: start: 20111107, end: 20111109
  7. TOPOTECIN [Concomitant]
     Indication: SYNOVIAL SARCOMA
     Dosage: 47 MG, 1X/DAY
     Route: 042
     Dates: start: 20111122, end: 20111126
  8. BACTRAMIN [Concomitant]
     Indication: PROPHYLAXIS
     Dosage: UNK
     Route: 048

REACTIONS (1)
  - Bone marrow failure [Recovered/Resolved]
